FAERS Safety Report 8419564-6 (Version None)
Quarter: 2012Q2

REPORT INFORMATION
  Report Type: 
  Country: None (occurrence: None)
  Receive Date: 20120607
  Receipt Date: 20120604
  Transmission Date: 20120825
  Serious: Yes (Death, Other)
  Sender: FDA-Public Use
  Company Number: CN-ROCHE-1075046

PATIENT
  Age: 66 Year
  Sex: Male

DRUGS (5)
  1. MABTHERA [Suspect]
     Indication: DIFFUSE LARGE B-CELL LYMPHOMA
  2. CYCLOPHOSPHAMIDE [Concomitant]
     Indication: DIFFUSE LARGE B-CELL LYMPHOMA
  3. PIRARUBICIN [Concomitant]
     Indication: DIFFUSE LARGE B-CELL LYMPHOMA
  4. PREDNISONE [Concomitant]
     Indication: DIFFUSE LARGE B-CELL LYMPHOMA
  5. VINCRISTINE [Concomitant]
     Indication: DIFFUSE LARGE B-CELL LYMPHOMA

REACTIONS (6)
  - HEPATIC ENCEPHALOPATHY [None]
  - PLEURAL EFFUSION [None]
  - HEPATORENAL SYNDROME [None]
  - HEPATITIS B [None]
  - ASCITES [None]
  - HEPATIC FUNCTION ABNORMAL [None]
